FAERS Safety Report 9700142 (Version 1)
Quarter: 2013Q4

REPORT INFORMATION
  Report Type: Spontaneous
  Country: BR (occurrence: BR)
  Receive Date: 20131121
  Receipt Date: 20131121
  Transmission Date: 20140711
  Serious: Yes (Other)
  Sender: FDA-Public Use
  Company Number: BR-ASTRAZENECA-2013SE84117

PATIENT
  Age: 66 Year
  Sex: Male

DRUGS (4)
  1. CRESTOR [Suspect]
     Route: 048
     Dates: start: 2011
  2. BRILINTA [Suspect]
     Route: 048
  3. JANUMET [Concomitant]
     Indication: BLOOD GLUCOSE ABNORMAL
  4. BENICAR [Concomitant]
     Indication: HYPERTENSION

REACTIONS (2)
  - Coronary artery occlusion [Not Recovered/Not Resolved]
  - Off label use [Unknown]
